FAERS Safety Report 9116290 (Version 1)
Quarter: 2013Q1

REPORT INFORMATION
  Report Type: Spontaneous
  Country: US (occurrence: US)
  Receive Date: 20130225
  Receipt Date: 20130225
  Transmission Date: 20140127
  Serious: Yes (Disabling, Other)
  Sender: FDA-Public Use
  Company Number: US-PFIZER INC-2013019074

PATIENT
  Age: 50 Year
  Sex: Female
  Weight: 74.83 kg

DRUGS (7)
  1. CHANTIX [Suspect]
     Indication: SMOKING CESSATION THERAPY
     Dosage: UNK
     Dates: start: 2007, end: 2007
  2. CHANTIX [Suspect]
     Dosage: UNK
     Dates: start: 2007, end: 2007
  3. VILAZODONE [Concomitant]
     Indication: DEPRESSION
     Dosage: 40 MG, DAILY
  4. VILAZODONE [Concomitant]
     Indication: ANXIETY
  5. CLONAZEPAM [Concomitant]
     Indication: ANXIETY
     Dosage: 1 MG, 5X/DAY
  6. CLONAZEPAM [Concomitant]
     Indication: PANIC ATTACK
  7. MORPHINE [Concomitant]
     Indication: MIGRAINE
     Dosage: UNK

REACTIONS (13)
  - Overdose [Unknown]
  - Suicidal ideation [Recovered/Resolved]
  - Personality disorder [Unknown]
  - Spinal disorder [Unknown]
  - Memory impairment [Unknown]
  - Impaired driving ability [Unknown]
  - Insomnia [Unknown]
  - Nightmare [Unknown]
  - Abnormal dreams [Unknown]
  - Asthenia [Unknown]
  - Nervousness [Unknown]
  - Feeling abnormal [Unknown]
  - General physical health deterioration [Unknown]
